FAERS Safety Report 5314522-2 (Version None)
Quarter: 2007Q2

REPORT INFORMATION
  Report Type: 
  Country: None (occurrence: None)
  Receive Date: 20070501
  Receipt Date: 20070501
  Transmission Date: 20071010
  Serious: Yes (Hospitalization)
  Sender: FDA-Public Use
  Company Number: None

PATIENT
  Age: 63 Year
  Sex: Female
  Weight: 72.5755 kg

DRUGS (9)
  1. ABCIXIMAB LILLY [Suspect]
     Indication: PERCUTANEOUS CORONARY INTERVENTION
     Dosage: 18.15MG IV BOLUS
     Route: 040
     Dates: start: 20061222, end: 20061223
  2. PROTONIX [Concomitant]
  3. COLACE [Concomitant]
  4. CELEXA [Concomitant]
  5. ZOCOR [Concomitant]
  6. ATIVAN [Concomitant]
  7. METOPROLOL SUCCINATE [Concomitant]
  8. ASPIRIN [Concomitant]
  9. PLAVIX [Concomitant]

REACTIONS (3)
  - POST PROCEDURAL COMPLICATION [None]
  - RESPIRATORY RATE INCREASED [None]
  - THROMBOCYTOPENIA [None]
